FAERS Safety Report 14834415 (Version 4)
Quarter: 2019Q1

REPORT INFORMATION
  Report Type: Spontaneous
  Country: JP (occurrence: JP)
  Receive Date: 20180501
  Receipt Date: 20190123
  Transmission Date: 20190417
  Serious: Yes (Death, Hospitalization, Other)
  Sender: FDA-Public Use
  Company Number: JP-PFIZER INC-2018174516

PATIENT
  Age: 55 Year
  Sex: Female
  Weight: 43 kg

DRUGS (3)
  1. RANMARK [Concomitant]
     Active Substance: DENOSUMAB
     Indication: METASTASES TO BONE
     Dosage: 120 MG, 1X/DAY
     Route: 058
     Dates: start: 20161130, end: 20180628
  2. FASLODEX [Concomitant]
     Active Substance: FULVESTRANT
     Indication: CHEST WALL TUMOUR
     Dosage: 500 MG, 1X/DAY
     Route: 030
     Dates: start: 20171019, end: 20180405
  3. IBRANCE [Suspect]
     Active Substance: PALBOCICLIB
     Indication: BREAST CANCER RECURRENT
     Dosage: 75 MG, DAILY
     Route: 048
     Dates: start: 20180405, end: 20180418

REACTIONS (8)
  - Neoplasm progression [Fatal]
  - Condition aggravated [Not Recovered/Not Resolved]
  - Tumour associated fever [Recovered/Resolved]
  - Neutrophil count decreased [Recovered/Resolved]
  - Dyspnoea [Unknown]
  - Pleural effusion [Not Recovered/Not Resolved]
  - White blood cell count decreased [Recovered/Resolved]
  - Fatigue [Recovered/Resolved]

NARRATIVE: CASE EVENT DATE: 20180411
